FAERS Safety Report 16950399 (Version 2)
Quarter: 2019Q4

REPORT INFORMATION
  Report Type: Spontaneous
  Country: US (occurrence: US)
  Receive Date: 20191023
  Receipt Date: 20191220
  Transmission Date: 20200122
  Serious: No
  Sender: FDA-Public Use
  Company Number: US-ASTRAZENECA-2019SF37464

PATIENT
  Sex: Male

DRUGS (3)
  1. EYE DROPS [Concomitant]
     Active Substance: UNSPECIFIED INGREDIENT
  2. BEVESPI AEROSPHERE [Suspect]
     Active Substance: FORMOTEROL FUMARATE\GLYCOPYRROLATE
     Indication: CHRONIC OBSTRUCTIVE PULMONARY DISEASE
     Dosage: 9 MCG+4.8 MCG, UNKNOWN
     Route: 055
  3. INSULIN [Concomitant]
     Active Substance: INSULIN NOS

REACTIONS (3)
  - Eye disorder [Unknown]
  - Product dose omission [Unknown]
  - Device issue [Unknown]
